FAERS Safety Report 5774425-6 (Version None)
Quarter: 2008Q2

REPORT INFORMATION
  Report Type: 
  Country: None (occurrence: None)
  Receive Date: 20080616
  Receipt Date: 20080606
  Transmission Date: 20081010
  Serious: Yes (Other)
  Sender: FDA-Public Use
  Company Number: US-PFIZER INC-2008040631

PATIENT
  Sex: Female
  Weight: 54.4 kg

DRUGS (4)
  1. GLIPIZIDE [Suspect]
     Indication: DIABETES MELLITUS
     Route: 048
  2. METFORMIN HCL [Concomitant]
  3. INSULIN [Concomitant]
  4. SIMVASTATIN [Concomitant]

REACTIONS (2)
  - BLOOD GLUCOSE FLUCTUATION [None]
  - TYPE 1 DIABETES MELLITUS [None]
